FAERS Safety Report 7051008-1 (Version None)
Quarter: 2010Q4

REPORT INFORMATION
  Report Type: 
  Country: None (occurrence: None)
  Receive Date: 20101019
  Receipt Date: 20101008
  Transmission Date: 20110411
  Serious: Yes (Other)
  Sender: FDA-Public Use
  Company Number: FR-WYE-G06576910

PATIENT
  Sex: Male

DRUGS (2)
  1. REFACTO [Suspect]
     Indication: FACTOR VIII DEFICIENCY
     Dosage: 4000 IU AT 9:50 AM BEFORE SURGERY TO REACH 120 % OF FACTOR VIII, THEN 2000 IU AT 2:00 PM AND 8:00 PM
     Route: 042
     Dates: start: 20100809, end: 20100809
  2. REFACTO [Suspect]
     Indication: KNEE ARTHROPLASTY
     Dosage: 2000 IU AT 4:00 AM, MIDDAY AND UNKNOWN DOSE AT 8:00 PM
     Route: 042
     Dates: start: 20100810, end: 20100810

REACTIONS (3)
  - COAGULATION FACTOR VIII LEVEL DECREASED [None]
  - DRUG INEFFECTIVE [None]
  - MUSCLE HAEMORRHAGE [None]
